FAERS Safety Report 22341105 (Version 1)
Quarter: 2023Q2

REPORT INFORMATION
  Report Type: Report from Study
  Country: US (occurrence: US)
  Receive Date: 20230518
  Receipt Date: 20230518
  Transmission Date: 20230722
  Serious: Yes (Other)
  Sender: FDA-Public Use
  Company Number: US-APIL-2314653US

PATIENT
  Sex: Male
  Weight: 99.79 kg

DRUGS (5)
  1. CARIPRAZINE HYDROCHLORIDE [Suspect]
     Active Substance: CARIPRAZINE HYDROCHLORIDE
     Indication: Major depression
     Dosage: 1.5 MG, QD
     Route: 048
     Dates: start: 20230505
  2. CARIPRAZINE HYDROCHLORIDE [Suspect]
     Active Substance: CARIPRAZINE HYDROCHLORIDE
     Dosage: 3 MG, BID
     Route: 048
     Dates: start: 202304, end: 202304
  3. CARIPRAZINE HYDROCHLORIDE [Suspect]
     Active Substance: CARIPRAZINE HYDROCHLORIDE
     Dosage: 1.5 MG, QD
     Route: 048
     Dates: start: 20230320, end: 202304
  4. LEXAPRO [Concomitant]
     Active Substance: ESCITALOPRAM OXALATE
     Indication: Major depression
     Dosage: 10 MG
  5. PHENELZINE [Concomitant]
     Active Substance: PHENELZINE
     Indication: Product used for unknown indication
     Dosage: UNK
     Dates: end: 202304

REACTIONS (3)
  - Apnoea [Recovering/Resolving]
  - Dyspnoea [Recovering/Resolving]
  - Intentional product misuse [Unknown]

NARRATIVE: CASE EVENT DATE: 20230401
